FAERS Safety Report 8535790-X (Version None)
Quarter: 2012Q3

REPORT INFORMATION
  Report Type: 
  Country: None (occurrence: None)
  Receive Date: 20120711
  Receipt Date: 20120628
  Transmission Date: 20120928
  Serious: Yes (Hospitalization, Other)
  Sender: FDA-Public Use
  Company Number: CIP11001750

PATIENT
  Age: 55 Year
  Sex: Male
  Weight: 86.6 kg

DRUGS (36)
  1. DITROPAN XL [Concomitant]
  2. ELECTROLYTE SOLUTIONS [Concomitant]
  3. PROTONIX [Concomitant]
  4. METOCLOPRAMIDE [Concomitant]
  5. KETOPROFEN [Concomitant]
  6. NITROFURANTOIN [Concomitant]
  7. OXAZEPAM [Concomitant]
  8. NITRO-BID [Concomitant]
  9. MIRALAX /00754501/ (MACROGOL) [Concomitant]
  10. CIPROFLOXACIN /00697202/ (CIPROFLOXACIN HYDROCHLORIDE) [Concomitant]
  11. MAGNESIUM (MAGNESIUM) [Concomitant]
  12. PREVACID [Concomitant]
  13. ALENDRONATE SODIUM [Concomitant]
  14. IBUPROFEN [Concomitant]
  15. HYOSCYAMINE (HYOSCYAMINE) [Concomitant]
  16. LEVAQUIN [Concomitant]
  17. FERROUS SULFATE TAB [Concomitant]
  18. ERGOCALCIFEROL [Concomitant]
  19. VITAMIN C /00008001/ (ASCORBIC ACID) [Concomitant]
  20. DIAZEPAM [Concomitant]
  21. LIDOCAINE HYDROCHLORIDE	/00033401/ (LIDOCAINE) [Concomitant]
  22. MULTIVITAMIN /00097801/ (ASCORBIC ACID, CALCIUM PANTOTHENATE, ERGOCALC [Concomitant]
  23. ACTONEL [Suspect]
     Dosage: 35 MG ONCE WEEKLY, ORAL
     Route: 048
     Dates: start: 20030930, end: 20090201
  24. BACLOFEN [Concomitant]
  25. GLYCOLAX (MACROGOL) [Concomitant]
  26. SULFAMETHOXAZOLE WITRIMETHOPRIM (SULFAMETHOXAZOLE, TRIMETHOPRIM) [Concomitant]
  27. NULYTELY /01625101/ (MACROGOL, POTASSIUM CHLORIDE, SODIUM BICARBONATE) [Concomitant]
  28. RANITIDINE HYDROCHLORIDE [Concomitant]
  29. OXYBUTYNIN [Concomitant]
  30. CALCIUM CARBONATE [Concomitant]
  31. OMEPRAZOLE [Concomitant]
  32. DANTROLENE SODIUM [Concomitant]
  33. LORAZEPAM [Concomitant]
  34. COLACE (DOCUSATE SODIUM) [Concomitant]
  35. MUSE [Concomitant]
  36. FIBERCON (POLYCARBOPHIL CALCIUM) [Concomitant]

REACTIONS (20)
  - OSTEOPENIA [None]
  - COMPARTMENT SYNDROME [None]
  - PNEUMONIA [None]
  - RESPIRATORY FAILURE [None]
  - FRACTURE DELAYED UNION [None]
  - FALL [None]
  - FEMUR FRACTURE [None]
  - TIBIA FRACTURE [None]
  - COMMINUTED FRACTURE [None]
  - LIGAMENT SPRAIN [None]
  - IMPAIRED HEALING [None]
  - VITAMIN D DEFICIENCY [None]
  - JOINT SWELLING [None]
  - MUSCLE ATROPHY [None]
  - OSTEOPOROSIS [None]
  - PATHOLOGICAL FRACTURE [None]
  - FIBULA FRACTURE [None]
  - FRACTURE DISPLACEMENT [None]
  - ATELECTASIS [None]
  - PHARYNGITIS [None]
